FAERS Safety Report 12664896 (Version 1)
Quarter: 2016Q3

REPORT INFORMATION
  Report Type: Spontaneous
  Country: CN (occurrence: CN)
  Receive Date: 20160818
  Receipt Date: 20160818
  Transmission Date: 20161109
  Serious: Yes (Other)
  Sender: FDA-Public Use
  Company Number: CN-BRISTOL-MYERS SQUIBB COMPANY-BMS-2016-067191

PATIENT
  Age: 50 Year
  Sex: Male

DRUGS (1)
  1. GLUCOPHAGE [Suspect]
     Active Substance: METFORMIN HYDROCHLORIDE
     Indication: TYPE 2 DIABETES MELLITUS
     Dosage: 0.85 G, QD
     Route: 048
     Dates: start: 2006

REACTIONS (4)
  - Blood bilirubin increased [Unknown]
  - Hepatic cirrhosis [Unknown]
  - Platelet count decreased [Unknown]
  - Splenomegaly [Unknown]
